FAERS Safety Report 8201428-4 (Version None)
Quarter: 2012Q1

REPORT INFORMATION
  Report Type: 
  Country: None (occurrence: None)
  Receive Date: 20120307
  Receipt Date: 20120224
  Transmission Date: 20120608
  Serious: Yes (Hospitalization)
  Sender: FDA-Public Use
  Company Number: AUR-APL-2012-00901

PATIENT
  Age: 49 Year
  Sex: Male
  Weight: 68.7 kg

DRUGS (9)
  1. SIMVASTATIN [Suspect]
     Indication: HYPERCHOLESTEROLAEMIA
     Dosage: (80 MG), ORAL
     Route: 048
     Dates: start: 20110801, end: 20120119
  2. VENTOLIN [Concomitant]
  3. AMITRIPTYLINE HCL [Suspect]
  4. FLUOXETINE [Concomitant]
  5. LISINOPRIL [Concomitant]
  6. QVAR [Concomitant]
  7. ALBUTEROL SULFATE [Concomitant]
  8. ACETAMINOPHEN W/ CODEINE [Concomitant]
  9. METFORMIN HCL [Concomitant]

REACTIONS (3)
  - RHABDOMYOLYSIS [None]
  - URINARY TRACT INFECTION [None]
  - ALANINE AMINOTRANSFERASE INCREASED [None]
